FAERS Safety Report 12697062 (Version 1)
Quarter: 2016Q3

REPORT INFORMATION
  Report Type: Spontaneous
  Country: US (occurrence: None)
  Receive Date: 20160829
  Receipt Date: 20160829
  Transmission Date: 20161109
  Serious: No
  Sender: FDA-Public Use
  Company Number: None

PATIENT
  Age: 29 Year
  Sex: Female
  Weight: 84.37 kg

DRUGS (1)
  1. CLINDAMYCIN [Suspect]
     Active Substance: CLINDAMYCIN\CLINDAMYCIN PHOSPHATE
     Indication: PHARYNGITIS
     Route: 048
     Dates: start: 20160825, end: 20160828

REACTIONS (3)
  - Dysphagia [None]
  - Dyspepsia [None]
  - Fungal infection [None]

NARRATIVE: CASE EVENT DATE: 20160828
